FAERS Safety Report 7421647-4 (Version None)
Quarter: 2011Q2

REPORT INFORMATION
  Report Type: 
  Country: None (occurrence: None)
  Receive Date: 20110418
  Receipt Date: 20110401
  Transmission Date: 20111010
  Serious: Yes (Other)
  Sender: FDA-Public Use
  Company Number: US-BAYER-2011-029598

PATIENT
  Age: 58 Year
  Sex: Female
  Weight: 119 kg

DRUGS (3)
  1. BAYER EXTRA STRENGTH BACK + BODY PAIN [Suspect]
     Indication: BACK PAIN
     Dosage: 2 DF, UNK
     Route: 048
  2. BENICAR HCT [Concomitant]
  3. ZETIA [Concomitant]

REACTIONS (3)
  - GASTRIC HAEMORRHAGE [None]
  - ABDOMINAL PAIN UPPER [None]
  - HAEMATOCHEZIA [None]
